FAERS Safety Report 4977937-8 (Version None)
Quarter: 2006Q2

REPORT INFORMATION
  Report Type: 
  Country: None (occurrence: None)
  Receive Date: 20060420
  Receipt Date: 20060106
  Transmission Date: 20061013
  Serious: Yes (Hospitalization, Disabling)
  Sender: FDA-Public Use
  Company Number: US-MERCK-0601USA01000

PATIENT
  Age: 49 Year
  Sex: Female
  Weight: 82 kg

DRUGS (15)
  1. PRAVACHOL [Concomitant]
     Indication: BLOOD CHOLESTEROL INCREASED
     Route: 065
  2. NIASPAN [Concomitant]
     Indication: BLOOD CHOLESTEROL INCREASED
     Route: 065
  3. HUMALOG [Concomitant]
     Indication: DIABETES MELLITUS
     Route: 065
  4. VIOXX [Suspect]
     Indication: ARTHRITIS
     Route: 048
     Dates: start: 19990101, end: 20040901
  5. VIOXX [Suspect]
     Indication: FIBROMYALGIA
     Route: 048
     Dates: start: 19990101, end: 20040901
  6. GLUCOPHAGE [Concomitant]
     Indication: DIABETES MELLITUS
     Route: 065
  7. INSULIN [Concomitant]
     Indication: DIABETES MELLITUS
     Route: 065
  8. ZETIA [Concomitant]
     Indication: BLOOD CHOLESTEROL INCREASED
     Route: 048
  9. PREMARIN [Concomitant]
     Indication: DEPRESSION
     Route: 065
     Dates: start: 20010101, end: 20040101
  10. ANAPRIL [Concomitant]
     Route: 065
  11. METOPROLOL [Concomitant]
     Indication: CARDIAC DISORDER
     Route: 065
  12. CEFTEZOLE [Concomitant]
     Route: 065
  13. ASPIRIN [Concomitant]
     Route: 065
     Dates: start: 19990101
  14. MONOPRIL [Concomitant]
     Indication: HYPERTENSION
     Route: 065
     Dates: start: 19990101
  15. PAXIL [Concomitant]
     Route: 065
     Dates: start: 20020101

REACTIONS (20)
  - AMNESIA [None]
  - ANXIETY [None]
  - ASTHENIA [None]
  - BLOOD CHOLESTEROL INCREASED [None]
  - CARDIAC DISORDER [None]
  - CHEST PAIN [None]
  - CORONARY ARTERY DISEASE [None]
  - CYST [None]
  - DEPRESSION [None]
  - DIABETES MELLITUS [None]
  - DYSPEPSIA [None]
  - DYSPNOEA [None]
  - FATIGUE [None]
  - HERNIA [None]
  - HYPERTENSION [None]
  - HYSTERECTOMY [None]
  - MYALGIA [None]
  - NECK PAIN [None]
  - SLEEP APNOEA SYNDROME [None]
  - UTERINE DISORDER [None]
